FAERS Safety Report 7119311-4 (Version None)
Quarter: 2010Q4

REPORT INFORMATION
  Report Type: 
  Country: None (occurrence: None)
  Receive Date: 20101123
  Receipt Date: 20101115
  Transmission Date: 20110411
  Serious: Yes (Other)
  Sender: FDA-Public Use
  Company Number: US-AMGEN-USASP2010001825

PATIENT

DRUGS (3)
  1. NPLATE [Suspect]
     Indication: IDIOPATHIC THROMBOCYTOPENIC PURPURA
     Dosage: 250 A?G, UNK
     Dates: start: 20090909, end: 20091223
  2. NEUPOGEN [Suspect]
     Dosage: 480 A?G, UNK
     Route: 058
  3. RED BLOOD CELLS [Concomitant]

REACTIONS (6)
  - ANAEMIA [None]
  - DRUG INEFFECTIVE [None]
  - FATIGUE [None]
  - PALLOR [None]
  - PANCYTOPENIA [None]
  - SKIN TURGOR DECREASED [None]
